FAERS Safety Report 17393766 (Version 2)
Quarter: 2020Q2

REPORT INFORMATION
  Report Type: Spontaneous
  Country: JP (occurrence: JP)
  Receive Date: 20200209
  Receipt Date: 20200424
  Transmission Date: 20200713
  Serious: Yes (Hospitalization)
  Sender: FDA-Public Use
  Company Number: JP-TAKEDA-2020TJP001357

PATIENT
  Age: 54 Year
  Sex: Female

DRUGS (1)
  1. TRINTELLIX [Suspect]
     Active Substance: VORTIOXETINE HYDROBROMIDE
     Indication: DEPRESSION
     Dosage: 5 MILLIGRAM
     Route: 048
     Dates: start: 20200106, end: 20200118

REACTIONS (3)
  - Dystonia [Not Recovered/Not Resolved]
  - Prescribed underdose [Unknown]
  - Depression [Unknown]

NARRATIVE: CASE EVENT DATE: 20200106
